FAERS Safety Report 18694432 (Version 1)
Quarter: 2020Q4

REPORT INFORMATION
  Report Type: Spontaneous
  Country: US (occurrence: US)
  Receive Date: 20201231
  Receipt Date: 20201231
  Transmission Date: 20210114
  Serious: No
  Sender: FDA-Public Use
  Company Number: None

PATIENT
  Age: 37 Year
  Sex: Male

DRUGS (1)
  1. MAVYRET [Suspect]
     Active Substance: GLECAPREVIR\PIBRENTASVIR
     Dosage: ?          OTHER DOSE:100NG/400MG;?
     Route: 048
     Dates: start: 202011, end: 202012

REACTIONS (11)
  - Flushing [None]
  - Back pain [None]
  - Headache [None]
  - Heart rate increased [None]
  - Fatigue [None]
  - Diarrhoea [None]
  - Tremor [None]
  - Vision blurred [None]
  - Thirst [None]
  - Constipation [None]
  - Blood glucose increased [None]

NARRATIVE: CASE EVENT DATE: 20201231
